FAERS Safety Report 4378265-4 (Version None)
Quarter: 2004Q2

REPORT INFORMATION
  Report Type: 
  Country: None (occurrence: None)
  Receive Date: 20040616
  Receipt Date: 20040526
  Transmission Date: 20050107
  Serious: Yes (Hospitalization)
  Sender: FDA-Public Use
  Company Number: PL-BRISTOL-MYERS SQUIBB COMPANY-12596714

PATIENT
  Age: 59 Year
  Sex: Male
  Weight: 60 kg

DRUGS (2)
  1. CISPLATIN [Suspect]
     Indication: BLADDER CANCER
     Dosage: THERAPY DATES: 26-FEB-2004 TO 06-MAY-2004; CUMULATIVE DOSE: 476 MG
     Route: 042
     Dates: start: 20040506, end: 20040506
  2. GEMCITABINE [Suspect]
     Indication: BLADDER CANCER
     Dosage: THERAPY DATES: 25-FEB-2004 TO 12-MAY-2004; CUMULATIVE DOSE: 15300 MG
     Route: 042
     Dates: start: 20040512, end: 20040512

REACTIONS (2)
  - INFECTION [None]
  - PYREXIA [None]
